FAERS Safety Report 12289311 (Version 1)
Quarter: 2016Q2

REPORT INFORMATION
  Report Type: Spontaneous
  Country: US (occurrence: US)
  Receive Date: 20160421
  Receipt Date: 20160421
  Transmission Date: 20160815
  Serious: No
  Sender: FDA-Public Use
  Company Number: US-ALVOGEN-2015-ALVOGEN-016894

PATIENT
  Age: 40 Year
  Sex: Male
  Weight: 117.94 kg

DRUGS (1)
  1. ATENOLOL. [Suspect]
     Active Substance: ATENOLOL
     Indication: BLOOD PRESSURE ABNORMAL
     Route: 048

REACTIONS (5)
  - Band sensation [Recovered/Resolved]
  - Vitreous floaters [Recovered/Resolved]
  - Paraesthesia [Recovered/Resolved]
  - Tinnitus [Not Recovered/Not Resolved]
  - Headache [Recovered/Resolved]
